FAERS Safety Report 9951901 (Version 1)
Quarter: 2014Q1

REPORT INFORMATION
  Report Type: Spontaneous
  Country: US (occurrence: US)
  Receive Date: 20140304
  Receipt Date: 20140304
  Transmission Date: 20141002
  Serious: No
  Sender: FDA-Public Use
  Company Number: US-AMGEN-USASP2013075723

PATIENT
  Age: 52 Year
  Sex: Male
  Weight: 81.63 kg

DRUGS (11)
  1. ENBREL [Suspect]
     Indication: PRODUCT USED FOR UNKNOWN INDICATION
     Dosage: 50 MG, QWK
     Route: 058
  2. METHYLPRED [Concomitant]
     Dosage: 8 MG, UNK
  3. VITAMIN D                          /00107901/ [Concomitant]
     Dosage: 1000 UNIT, UNK
  4. VITAMIN B-12 [Concomitant]
     Dosage: 100 MUG, UNK
  5. MULTIVITAMINS, PLAIN [Concomitant]
     Dosage: UNK
  6. AMLODIPINE BENAZEPRIL [Concomitant]
     Dosage: UNK, 5-10 MG
  7. ALLOPURINOL [Concomitant]
     Dosage: 100 MG, UNK
  8. ASPIRIN [Concomitant]
     Dosage: 81 MG, UNK
  9. HYDROXYCHLOROQUINE [Concomitant]
     Dosage: 200 MG, UNK
  10. OMEPRAZOLE [Concomitant]
     Dosage: 20 MG, UNK
  11. NORCO [Concomitant]
     Dosage: 10-325 MG

REACTIONS (1)
  - Drug ineffective [Unknown]
